FAERS Safety Report 5637284-8 (Version None)
Quarter: 2008Q1

REPORT INFORMATION
  Report Type: 
  Country: None (occurrence: None)
  Receive Date: 20080225
  Receipt Date: 20080221
  Transmission Date: 20080703
  Serious: Yes (Life-Threatening, Hospitalization)
  Sender: FDA-Public Use
  Company Number: SE-JNJFOC-20080205050

PATIENT
  Age: 17 Year
  Sex: Female

DRUGS (1)
  1. NORGESTIMATE AND ETHINYL ESTRADIOL [Suspect]
     Indication: DYSMENORRHOEA
     Route: 048

REACTIONS (7)
  - ARTHRALGIA [None]
  - CARDIAC ARREST [None]
  - DIZZINESS [None]
  - JOINT SWELLING [None]
  - MALAISE [None]
  - OFF LABEL USE [None]
  - THROMBOSIS [None]
